FAERS Safety Report 7275600-4 (Version None)
Quarter: 2011Q1

REPORT INFORMATION
  Report Type: 
  Country: None (occurrence: None)
  Receive Date: 20110131
  Receipt Date: 20110117
  Transmission Date: 20110831
  Serious: Yes (Hospitalization)
  Sender: FDA-Public Use
  Company Number: 812018

PATIENT
  Age: 80 Year
  Sex: Male
  Weight: 55 kg

DRUGS (2)
  1. VINORELBINE TARTRATE [Suspect]
     Indication: BRONCHIAL CARCINOMA
     Dosage: 50 MG MILLIGRAM(S), INTRAVENOUS DRIP
     Route: 041
     Dates: start: 20040914, end: 20040914
  2. VINORELBINE TARTRATE [Suspect]
     Indication: LUNG NEOPLASM MALIGNANT
     Dosage: 50 MG MILLIGRAM(S), INTRAVENOUS DRIP
     Route: 041
     Dates: start: 20040914, end: 20040914

REACTIONS (6)
  - DEHYDRATION [None]
  - FATIGUE [None]
  - NEUTROPENIA [None]
  - CONSTIPATION [None]
  - ORAL CANDIDIASIS [None]
  - PYREXIA [None]
